FAERS Safety Report 7760046-2 (Version None)
Quarter: 2011Q3

REPORT INFORMATION
  Report Type: 
  Country: None (occurrence: None)
  Receive Date: 20110919
  Receipt Date: 20110901
  Transmission Date: 20111222
  Serious: Yes (Hospitalization, Disabling)
  Sender: FDA-Public Use
  Company Number: US-BAYER-2011-009258

PATIENT
  Age: 52 Year
  Sex: Female
  Weight: 90.703 kg

DRUGS (22)
  1. KLONOPIN [Concomitant]
     Indication: ANXIETY
  2. MULTI-VITAMIN [Concomitant]
     Dosage: UNK UNK, QD
  3. SYNTHROID [Concomitant]
     Indication: HYPOTHYROIDISM
     Dosage: 75 MCG
     Dates: start: 20050101, end: 20100101
  4. ZOLOFT [Concomitant]
     Indication: ANXIETY
     Dosage: UNK
     Dates: start: 20030101
  5. ZOLOFT [Concomitant]
     Indication: OBSESSIVE-COMPULSIVE DISORDER
  6. ALLEGRA [Concomitant]
     Indication: MULTIPLE ALLERGIES
     Dosage: 60 MG, UNK
     Dates: start: 20000101, end: 20100101
  7. CLONAZEPAM [Concomitant]
  8. YASMIN [Suspect]
     Indication: CONTRACEPTION
     Dosage: UNK
     Dates: start: 20060101
  9. TRAZODONE HCL [Concomitant]
     Indication: SLEEP DISORDER THERAPY
     Dosage: 50 MG, UNK
     Dates: start: 20030101
  10. NEXIUM [Concomitant]
  11. FLONASE [Concomitant]
     Indication: MULTIPLE ALLERGIES
     Dosage: UNK
     Dates: start: 20000101
  12. DIETARY SUPPLEMENTS [Concomitant]
  13. KLONOPIN [Concomitant]
     Indication: OBSESSIVE-COMPULSIVE DISORDER
     Dosage: 0.5 MG
     Dates: start: 20070101, end: 20090101
  14. PRAVACHOL [Concomitant]
     Indication: BLOOD CHOLESTEROL INCREASED
     Dosage: 40 MG, UNK
     Dates: start: 20070101, end: 20100101
  15. VALTREX [Concomitant]
     Dosage: 500 MG, QD
  16. ESTER C [Concomitant]
  17. YAZ [Suspect]
     Indication: CONTRACEPTION
     Dosage: UNK
     Dates: start: 20080902, end: 20090115
  18. YASMIN [Suspect]
     Dosage: UNK
     Dates: start: 20070101
  19. LORTAB [Concomitant]
     Indication: PAIN
     Dosage: 5/325
  20. ASCORBIC ACID [Concomitant]
     Dosage: DAILY
  21. SKELAXIN [Concomitant]
     Dosage: TID/PRN
  22. NAPROXEN (ALEVE) [Concomitant]
     Dosage: 220 - 440 MG

REACTIONS (11)
  - DEEP VEIN THROMBOSIS [None]
  - MENTAL DISORDER [None]
  - ANXIETY [None]
  - ERYTHEMA [None]
  - JOINT SWELLING [None]
  - DEPRESSION [None]
  - ARTHRALGIA [None]
  - PAIN IN EXTREMITY [None]
  - FEELING HOT [None]
  - OEDEMA PERIPHERAL [None]
  - VENOUS INSUFFICIENCY [None]
